FAERS Safety Report 6388680-5 (Version None)
Quarter: 2009Q4

REPORT INFORMATION
  Report Type: 
  Country: None (occurrence: None)
  Receive Date: 20091001
  Receipt Date: 20090916
  Transmission Date: 20100525
  Serious: Yes (Hospitalization)
  Sender: FDA-Public Use
  Company Number: AUR-APL-2009-00685

PATIENT
  Age: 44 Year
  Sex: Female

DRUGS (3)
  1. FLUOXETINE [Suspect]
     Indication: PSYCHIATRIC SYMPTOM
  2. CYCLOSPORINE [Suspect]
     Indication: PUSTULAR PSORIASIS
     Dosage: 300MG - DAILY
  3. ACITRETIN [Suspect]
     Indication: PUSTULAR PSORIASIS
     Dosage: 35MG - DAIYL

REACTIONS (3)
  - POTENTIATING DRUG INTERACTION [None]
  - PSYCHIATRIC SYMPTOM [None]
  - PUSTULAR PSORIASIS [None]
